FAERS Safety Report 8458198-4 (Version None)
Quarter: 2012Q2

REPORT INFORMATION
  Report Type: 
  Country: None (occurrence: None)
  Receive Date: 20120323
  Receipt Date: 20111024
  Transmission Date: 20120825
  Serious: Yes (Other)
  Sender: FDA-Public Use
  Company Number: 163-21880-11102875

PATIENT
  Age: 80 Year
  Sex: Male

DRUGS (4)
  1. LISINOPRIL [Concomitant]
  2. CALCIUM 1000 + D (CALCIUM D3 ^STADA^)(UNKNOWN) [Concomitant]
  3. LENALIDOMIDE [Suspect]
     Indication: MULTIPLE MYELOMA
     Dosage: 10MG, X28 CAPS, PO
     Route: 048
  4. MULTIVITAMINS (MULTIVITAMINS)(UNKNOWN) [Concomitant]

REACTIONS (1)
  - INFECTION [None]
